FAERS Safety Report 21601544 (Version 1)
Quarter: 2022Q4

REPORT INFORMATION
  Report Type: Spontaneous
  Country: US (occurrence: None)
  Receive Date: 20221115
  Receipt Date: 20221115
  Transmission Date: 20230113
  Serious: No
  Sender: FDA-Public Use
  Company Number: None

PATIENT
  Age: 90 Year
  Sex: Female

DRUGS (9)
  1. IBRANCE [Suspect]
     Active Substance: PALBOCICLIB
     Indication: Breast cancer female
     Dosage: OTHER FREQUENCY : 21DPN7DOFF;?
     Route: 048
  2. ADVAIR DISKUS [Concomitant]
  3. ALENDRONATE [Concomitant]
  4. ASPIRIN [Concomitant]
  5. CETIRIZINE [Concomitant]
  6. DETROL LA [Concomitant]
  7. FULVESTRANT [Concomitant]
  8. MELOXICAM [Concomitant]
  9. TELMISARTAN [Concomitant]

REACTIONS (1)
  - White blood cell count decreased [None]
